FAERS Safety Report 25736959 (Version 1)
Quarter: 2025Q3

REPORT INFORMATION
  Report Type: Report from Study
  Country: EU (occurrence: EU)
  Receive Date: 20250828
  Receipt Date: 20250828
  Transmission Date: 20251021
  Serious: Yes (Death, Hospitalization, Other)
  Sender: PFIZER
  Company Number: EU-002147023-NVSC2025IT065484

PATIENT
  Age: 15 Year
  Sex: Male
  Weight: 45 kg

DRUGS (10)
  1. INOTUZUMAB OZOGAMICIN [Suspect]
     Active Substance: INOTUZUMAB OZOGAMICIN
     Indication: Philadelphia positive acute lymphocytic leukaemia
     Route: 065
     Dates: start: 20250117
  2. INOTUZUMAB OZOGAMICIN [Suspect]
     Active Substance: INOTUZUMAB OZOGAMICIN
     Route: 042
     Dates: start: 20250324
  3. INOTUZUMAB OZOGAMICIN [Suspect]
     Active Substance: INOTUZUMAB OZOGAMICIN
     Route: 042
     Dates: start: 20250331
  4. INOTUZUMAB OZOGAMICIN [Suspect]
     Active Substance: INOTUZUMAB OZOGAMICIN
     Route: 042
     Dates: start: 20250407
  5. INOTUZUMAB OZOGAMICIN [Suspect]
     Active Substance: INOTUZUMAB OZOGAMICIN
  6. ASCIMINIB [Suspect]
     Active Substance: ASCIMINIB
     Indication: Philadelphia positive acute lymphocytic leukaemia
     Dosage: 200 MG, BID
     Route: 048
     Dates: start: 20250325, end: 20250327
  7. ASCIMINIB [Suspect]
     Active Substance: ASCIMINIB
  8. BLINATUMOMAB [Concomitant]
     Active Substance: BLINATUMOMAB
     Indication: Philadelphia positive acute lymphocytic leukaemia
     Route: 065
  9. DASATINIB [Concomitant]
     Active Substance: DASATINIB
     Indication: Philadelphia positive acute lymphocytic leukaemia
     Route: 065
  10. NILOTINIB [Concomitant]
     Active Substance: NILOTINIB
     Indication: Philadelphia positive acute lymphocytic leukaemia
     Route: 065

REACTIONS (8)
  - Death [Fatal]
  - White blood cell count decreased [Recovering/Resolving]
  - Platelet count decreased [Recovering/Resolving]
  - Neutrophil count decreased [Recovering/Resolving]
  - General physical health deterioration [Unknown]
  - Enterococcal infection [Unknown]
  - Acute respiratory failure [Unknown]
  - Lung disorder [Unknown]

NARRATIVE: CASE EVENT DATE: 20250327
